FAERS Safety Report 19583550 (Version 1)
Quarter: 2021Q3

REPORT INFORMATION
  Report Type: Other
  Country: US (occurrence: US)
  Receive Date: 20210720
  Receipt Date: 20210720
  Transmission Date: 20211014
  Serious: Yes (Hospitalization)
  Sender: FDA-Public Use
  Company Number: US-INTERCEPT-PM2021002207

PATIENT
  Sex: Female

DRUGS (1)
  1. OCALIVA [Suspect]
     Active Substance: OBETICHOLIC ACID
     Indication: PRIMARY BILIARY CHOLANGITIS
     Dosage: 5 MILLIGRAM, QD
     Route: 048
     Dates: start: 20191220

REACTIONS (8)
  - Chromaturia [Unknown]
  - Hospitalisation [Not Recovered/Not Resolved]
  - Depressed mood [Unknown]
  - Conversion disorder [Unknown]
  - Yellow skin [Unknown]
  - Urinary tract operation [Unknown]
  - Decreased appetite [Unknown]
  - Ocular icterus [Unknown]
